FAERS Safety Report 10455121 (Version 2)
Quarter: 2014Q3

REPORT INFORMATION
  Report Type: Spontaneous
  Country: NL (occurrence: NL)
  Receive Date: 20140916
  Receipt Date: 20140925
  Transmission Date: 20150326
  Serious: Yes (Life-Threatening, Hospitalization, Other)
  Sender: FDA-Public Use
  Company Number: NL-AUROBINDO-AUR-APL-2014-09637

PATIENT
  Age: 42 Year
  Sex: Female

DRUGS (4)
  1. INSULIN [Suspect]
     Active Substance: INSULIN NOS
     Indication: PRODUCT USED FOR UNKNOWN INDICATION
     Route: 065
  2. DULOXETINE [Suspect]
     Active Substance: DULOXETINE
     Indication: PRODUCT USED FOR UNKNOWN INDICATION
     Route: 065
  3. QUETIAPINE [Suspect]
     Active Substance: QUETIAPINE
     Indication: PRODUCT USED FOR UNKNOWN INDICATION
     Route: 065
  4. FLURAZEPAM [Suspect]
     Active Substance: FLURAZEPAM\FLURAZEPAM HYDROCHLORIDE
     Indication: PRODUCT USED FOR UNKNOWN INDICATION
     Route: 065

REACTIONS (12)
  - Depressed level of consciousness [Recovering/Resolving]
  - Blood creatine phosphokinase increased [Recovering/Resolving]
  - Intentional product misuse [Recovering/Resolving]
  - Electrocardiogram QRS complex prolonged [Recovered/Resolved]
  - Drug level above therapeutic [Recovering/Resolving]
  - Pyrexia [Recovering/Resolving]
  - Bradykinesia [Recovering/Resolving]
  - Hypertension [Recovering/Resolving]
  - Cogwheel rigidity [Recovering/Resolving]
  - Neuroleptic malignant syndrome [Recovering/Resolving]
  - Muscle rigidity [Recovered/Resolved]
  - Condition aggravated [Recovering/Resolving]
